FAERS Safety Report 5317434-3 (Version None)
Quarter: 2007Q2

REPORT INFORMATION
  Report Type: 
  Country: None (occurrence: None)
  Receive Date: 20070503
  Receipt Date: 20070503
  Transmission Date: 20071010
  Serious: Yes (Life-Threatening)
  Sender: FDA-Public Use
  Company Number: None

PATIENT
  Sex: Female
  Weight: 93.441 kg

DRUGS (1)
  1. ADDERALL XR 10 [Suspect]
     Dosage: 15 MG, PO QAM
     Route: 048
     Dates: start: 20070429, end: 20070501

REACTIONS (2)
  - RASH [None]
  - URTICARIA [None]
